FAERS Safety Report 6132041-0 (Version None)
Quarter: 2009Q1

REPORT INFORMATION
  Report Type: 
  Country: None (occurrence: None)
  Receive Date: 20090325
  Receipt Date: 20090319
  Transmission Date: 20090719
  Serious: Yes (Hospitalization)
  Sender: FDA-Public Use
  Company Number: BR-PFIZER INC-2008100462

PATIENT

DRUGS (1)
  1. DETRUSITOL LA [Suspect]

REACTIONS (1)
  - STEVENS-JOHNSON SYNDROME [None]
